FAERS Safety Report 24800532 (Version 1)
Quarter: 2025Q1

REPORT INFORMATION
  Report Type: Spontaneous
  Country: DE (occurrence: DE)
  Receive Date: 20250102
  Receipt Date: 20250102
  Transmission Date: 20250409
  Serious: Yes (Life-Threatening, Hospitalization)
  Sender: GILEAD
  Company Number: None

PATIENT
  Sex: Male

DRUGS (13)
  1. CAYSTON [Suspect]
     Active Substance: AZTREONAM
     Indication: Chronic obstructive pulmonary disease
     Dosage: 1-1-1
     Route: 055
     Dates: start: 20241106, end: 20241106
  2. CAYSTON [Suspect]
     Active Substance: AZTREONAM
     Route: 055
     Dates: start: 20241208, end: 20241208
  3. TAMSULOSIN [Concomitant]
     Active Substance: TAMSULOSIN
  4. BEMPEDOIC ACID\EZETIMIBE [Concomitant]
     Active Substance: BEMPEDOIC ACID\EZETIMIBE
  5. FERROUS GLYCINE SULFATE [Concomitant]
     Active Substance: FERROUS GLYCINE SULFATE
  6. BISOPROLOL FUMARATE [Concomitant]
     Active Substance: BISOPROLOL FUMARATE
  7. NOVODIGAL (.BETA.-ACETYLDIGOXIN) [Concomitant]
     Active Substance: .BETA.-ACETYLDIGOXIN
  8. CLOPIDOGREL BISULFATE [Concomitant]
     Active Substance: CLOPIDOGREL BISULFATE
  9. PANTOPRAZOLE SODIUM [Concomitant]
     Active Substance: PANTOPRAZOLE SODIUM
  10. DROPIZOL [Concomitant]
  11. ROSUVASTATIN VIVANTA [Concomitant]
  12. IBUPROFEN [Concomitant]
     Active Substance: IBUPROFEN
  13. ROFLUMILAST [Concomitant]
     Active Substance: ROFLUMILAST

REACTIONS (6)
  - Haemoptysis [Unknown]
  - Blood pressure decreased [Unknown]
  - Dyspnoea [Unknown]
  - Hot flush [Unknown]
  - Paraesthesia [Unknown]
  - Cardiovascular disorder [Unknown]

NARRATIVE: CASE EVENT DATE: 20241106
